FAERS Safety Report 9995338 (Version 3)
Quarter: 2014Q2

REPORT INFORMATION
  Report Type: Report from Study
  Country: CA (occurrence: CA)
  Receive Date: 20140311
  Receipt Date: 20140523
  Transmission Date: 20141212
  Serious: Yes (Other)
  Sender: FDA-Public Use
  Company Number: CA-JNJFOC-20140303472

PATIENT
  Age: 36 Year
  Sex: Male
  Weight: 84 kg

DRUGS (3)
  1. REMICADE [Suspect]
     Indication: CROHN^S DISEASE
     Dosage: TOTAL 9 INFUSIONS
     Route: 042
     Dates: start: 201301
  2. IMURAN [Concomitant]
     Route: 065
  3. ASA [Concomitant]
     Route: 065

REACTIONS (3)
  - Haematuria [Recovered/Resolved]
  - Nephrolithiasis [Recovered/Resolved]
  - Back pain [Unknown]
